FAERS Safety Report 8398845 (Version 6)
Quarter: 2012Q4

REPORT INFORMATION
  Report Type: 
  Country: US (occurrence: US)
  Receive Date: 20120210
  Receipt Date: 20121112
  Transmission Date: 20130627
  Serious: No
  Sender: FDA-Public Use
  Company Number: US-BIOGENIDEC-2012BI004066

PATIENT
  Age: 54 None
  Sex: Female

DRUGS (2)
  1. TYSABRI [Suspect]
     Indication: MULTIPLE SCLEROSIS
     Route: 042
     Dates: start: 20110616, end: 20111206
  2. IVIG [Concomitant]

REACTIONS (20)
  - Muscle tightness [Unknown]
  - Drug intolerance [Recovered/Resolved]
  - Neuralgia [Unknown]
  - Feeling abnormal [Not Recovered/Not Resolved]
  - Mental impairment [Recovered/Resolved]
  - Memory impairment [Recovered/Resolved]
  - Tooth disorder [Not Recovered/Not Resolved]
  - Gingival pain [Recovered/Resolved]
  - Adrenal disorder [Not Recovered/Not Resolved]
  - Adrenal insufficiency [Unknown]
  - Bladder disorder [Not Recovered/Not Resolved]
  - Pain [Not Recovered/Not Resolved]
  - Multiple sclerosis relapse [Not Recovered/Not Resolved]
  - Malaise [Not Recovered/Not Resolved]
  - Headache [Unknown]
  - Dizziness [Unknown]
  - Alopecia [Recovered/Resolved]
  - Drug specific antibody present [Not Recovered/Not Resolved]
  - Rash [Recovered/Resolved]
  - Pyrexia [Recovered/Resolved]
